FAERS Safety Report 17456906 (Version 10)
Quarter: 2021Q4

REPORT INFORMATION
  Report Type: Spontaneous
  Country: US (occurrence: US)
  Receive Date: 20200225
  Receipt Date: 20211228
  Transmission Date: 20220303
  Serious: Yes (Hospitalization, Disabling, Other)
  Sender: FDA-Public Use
  Company Number: US-PFIZER INC-2019235051

PATIENT
  Age: 70 Year
  Sex: Female

DRUGS (2)
  1. LYRICA [Suspect]
     Active Substance: PREGABALIN
     Indication: Fibromyalgia
     Dosage: 100 MG, 2X/DAY
     Route: 048
  2. LYRICA [Suspect]
     Active Substance: PREGABALIN
     Dosage: 75 MG, 4X/DAY (1 CAP 4 TIMES DAILY)
     Route: 048

REACTIONS (20)
  - Myocardial infarction [Recovering/Resolving]
  - Gait inability [Unknown]
  - Back pain [Unknown]
  - Neoplasm malignant [Unknown]
  - Renal failure [Unknown]
  - Leukaemia [Unknown]
  - Iron deficiency [Not Recovered/Not Resolved]
  - Rib fracture [Unknown]
  - Pain [Unknown]
  - Irritability [Unknown]
  - Feeling abnormal [Unknown]
  - Malaise [Unknown]
  - Regressive behaviour [Unknown]
  - Mental disorder [Unknown]
  - Speech disorder [Unknown]
  - Peripheral swelling [Unknown]
  - Fall [Unknown]
  - Memory impairment [Unknown]
  - Circumstance or information capable of leading to medication error [Unknown]
  - Knee arthroplasty [Unknown]

NARRATIVE: CASE EVENT DATE: 20210601
